FAERS Safety Report 10361040 (Version 3)
Quarter: 2014Q3

REPORT INFORMATION
  Report Type: Spontaneous
  Country: JP (occurrence: JP)
  Receive Date: 20140804
  Receipt Date: 20140929
  Transmission Date: 20150326
  Serious: Yes (Death)
  Sender: FDA-Public Use
  Company Number: JP-ASTRAZENECA-2014SE56053

PATIENT
  Age: 74 Year
  Sex: Female

DRUGS (25)
  1. LINTACIN [Concomitant]
     Indication: PURPURA FULMINANS
     Dates: start: 20110425, end: 20110428
  2. KENKETSU GLOVENIN-I-NICHIYAKU [Concomitant]
     Indication: PURPURA FULMINANS
     Dates: start: 20110424, end: 20110426
  3. VASOPRESSIN [Concomitant]
     Active Substance: VASOPRESSIN
  4. HYDROCORTONE [Concomitant]
     Active Substance: HYDROCORTISONE
     Indication: SEPTIC SHOCK
     Dates: start: 20110428, end: 20110430
  5. DAIKENCHUTO [Concomitant]
     Active Substance: HERBALS
     Indication: INTESTINAL OBSTRUCTION
     Dates: start: 20110501, end: 20110508
  6. PENICILLIN G [Concomitant]
     Active Substance: PENICILLIN G
     Indication: PNEUMOCOCCAL INFECTION
     Dates: start: 20110425, end: 20110426
  7. NORADRENALIN [Concomitant]
     Active Substance: NOREPINEPHRINE\NOREPINEPHRINE BITARTRATE
  8. HYDROCORTONE [Concomitant]
     Active Substance: HYDROCORTISONE
     Indication: SEPTIC SHOCK
     Dates: start: 20110424, end: 20110425
  9. REMODULIN [Concomitant]
     Active Substance: TREPROSTINIL
     Indication: DISSEMINATED INTRAVASCULAR COAGULATION
     Dates: start: 20110425, end: 20110426
  10. ALBUMIN [Concomitant]
     Active Substance: ALBUMIN (HUMAN)
     Indication: HYPOALBUMINAEMIA
     Dosage: UNKNOWN DOSE
     Dates: start: 20110428, end: 20110430
  11. ALBUMIN [Concomitant]
     Active Substance: ALBUMIN (HUMAN)
     Indication: HYPOALBUMINAEMIA
     Dates: start: 20110429, end: 20110429
  12. TAKEPRON [Concomitant]
     Active Substance: LANSOPRAZOLE
     Indication: GASTRIC MUCOSAL LESION
     Dates: start: 20110501, end: 20110508
  13. MEROPENEM. [Suspect]
     Active Substance: MEROPENEM
     Indication: PNEUMOCOCCAL INFECTION
     Route: 042
     Dates: start: 20110424, end: 20110428
  14. MEROPENEM. [Suspect]
     Active Substance: MEROPENEM
     Indication: PURPURA FULMINANS
     Route: 042
     Dates: start: 20110424, end: 20110428
  15. LINTACIN [Concomitant]
     Indication: PNEUMOCOCCAL INFECTION
     Dates: start: 20110425, end: 20110428
  16. OMEPRAL [Concomitant]
     Active Substance: OMEPRAZOLE
     Indication: GASTRIC MUCOSAL LESION
     Dates: start: 20110424, end: 20110502
  17. PENICILLIN G [Concomitant]
     Active Substance: PENICILLIN G
     Indication: PURPURA FULMINANS
     Dates: start: 20110425, end: 20110426
  18. KENKETSU GLOVENIN-I-NICHIYAKU [Concomitant]
     Indication: PNEUMOCOCCAL INFECTION
     Dates: start: 20110424, end: 20110426
  19. DOBUTAMINE HYDROCHLORIDE. [Concomitant]
     Active Substance: DOBUTAMINE HYDROCHLORIDE
  20. HYDROCORTONE [Concomitant]
     Active Substance: HYDROCORTISONE
     Indication: SEPTIC SHOCK
     Dates: start: 20110501, end: 20110503
  21. PENICILLIN G [Concomitant]
     Active Substance: PENICILLIN G
     Indication: PNEUMOCOCCAL INFECTION
     Dates: start: 20110428, end: 20110509
  22. ZOSYN [Concomitant]
     Active Substance: PIPERACILLIN SODIUM\TAZOBACTAM SODIUM
     Indication: ENTERITIS INFECTIOUS
     Dates: start: 20110424, end: 20110425
  23. PRIDOL [Concomitant]
     Active Substance: METHYLPREDNISOLONE SODIUM SUCCINATE
     Indication: SEPTIC SHOCK
     Dates: start: 20110425, end: 20110427
  24. PENICILLIN G [Concomitant]
     Active Substance: PENICILLIN G
     Indication: PURPURA FULMINANS
     Dates: start: 20110428, end: 20110509
  25. NEUART [Concomitant]
     Dates: start: 20110424, end: 20110426

REACTIONS (7)
  - Clostridium difficile colitis [Fatal]
  - Escherichia urinary tract infection [Fatal]
  - Hypotension [Fatal]
  - Multi-organ failure [Fatal]
  - Septic shock [Fatal]
  - Abdominal compartment syndrome [Fatal]
  - Death [Fatal]
